FAERS Safety Report 17960787 (Version 1)
Quarter: 2020Q2

REPORT INFORMATION
  Report Type: Spontaneous
  Country: US (occurrence: US)
  Receive Date: 20200629
  Receipt Date: 20200629
  Transmission Date: 20200714
  Serious: No
  Sender: FDA-Public Use
  Company Number: US-ROCHE-2461983

PATIENT
  Sex: Female
  Weight: 68.1 kg

DRUGS (5)
  1. ZOFRAN [Concomitant]
     Active Substance: ONDANSETRON HYDROCHLORIDE
     Route: 065
     Dates: start: 20180529, end: 20180924
  2. FLUZONE [INFLUENZA VACCINE] [Concomitant]
     Route: 030
  3. XELODA [Suspect]
     Active Substance: CAPECITABINE
     Indication: NEOPLASM MALIGNANT
     Dosage: TAKE 3 TABLETS BY MOUTH TWI
     Route: 048
     Dates: start: 20180612
  4. LORAZEPAM. [Concomitant]
     Active Substance: LORAZEPAM
     Route: 065
  5. EFFEXOR [Concomitant]
     Active Substance: VENLAFAXINE HYDROCHLORIDE
     Route: 065
     Dates: start: 20180529, end: 20180924

REACTIONS (2)
  - Dry skin [Unknown]
  - Neuropathy peripheral [Unknown]
